FAERS Safety Report 9336704 (Version 2)
Quarter: 2013Q3

REPORT INFORMATION
  Report Type: Spontaneous
  Country: US (occurrence: US)
  Receive Date: 20130607
  Receipt Date: 20130715
  Transmission Date: 20140515
  Serious: Yes (Hospitalization)
  Sender: FDA-Public Use
  Company Number: US-ASTELLAS-2013US005921

PATIENT
  Age: 10 Year
  Sex: Male

DRUGS (9)
  1. PROGRAF [Suspect]
     Indication: INTESTINAL TRANSPLANT
     Dosage: 1 MG, BID
     Route: 048
     Dates: start: 20090206
  2. BRIOSCHI [Concomitant]
     Indication: PRODUCT USED FOR UNKNOWN INDICATION
     Dosage: 1300 MG IN AM, 650 MG IN PM
     Route: 048
     Dates: start: 20130307
  3. MAG OXIDE [Concomitant]
     Indication: PRODUCT USED FOR UNKNOWN INDICATION
     Dosage: 20 MEQ, BID
     Route: 048
     Dates: start: 20120810
  4. MAG OXIDE [Concomitant]
     Dosage: 20 MEQ, UID/QD
     Route: 048
     Dates: start: 20130425
  5. MEPRON                             /01181501/ [Concomitant]
     Indication: PRODUCT USED FOR UNKNOWN INDICATION
     Dosage: 500 MG, UID/QD
     Route: 048
     Dates: start: 20120910
  6. MEPRON                             /01181501/ [Concomitant]
     Dosage: 750 MG, UID/QD
     Route: 048
     Dates: start: 20130314
  7. MULTIVITAMINES WITH IRON           /02170101/ [Concomitant]
     Indication: PRODUCT USED FOR UNKNOWN INDICATION
     Dosage: 1 UNK, UID/QD
     Route: 048
     Dates: start: 20120810
  8. MYLICON [Concomitant]
     Indication: PRODUCT USED FOR UNKNOWN INDICATION
     Dosage: 60 MG, TID
     Route: 048
     Dates: start: 20100111
  9. RISPERDAL [Concomitant]
     Indication: PRODUCT USED FOR UNKNOWN INDICATION
     Dosage: 0.25 MG IN AM, 0.5 MG IN PM
     Dates: start: 20120810

REACTIONS (2)
  - Off label use [Unknown]
  - Intestine transplant rejection [Recovering/Resolving]
